FAERS Safety Report 9174576 (Version 1)
Quarter: 2013Q1

REPORT INFORMATION
  Report Type: Spontaneous
  Country: US (occurrence: US)
  Receive Date: 20130320
  Receipt Date: 20130320
  Transmission Date: 20140127
  Serious: No
  Sender: FDA-Public Use
  Company Number: US-PFIZER INC-2013091843

PATIENT
  Age: 61 Year
  Sex: Female
  Weight: 87.08 kg

DRUGS (4)
  1. LYRICA [Suspect]
     Indication: FIBROMYALGIA
     Dosage: 200 MG, UNK
     Route: 048
  2. LYRICA [Suspect]
     Dosage: 100 MG, UNK
     Route: 048
  3. LYRICA [Suspect]
     Dosage: 50 MG, 3X/DAY
     Route: 048
     Dates: end: 20121215
  4. OMEPRAZOLE [Concomitant]
     Indication: GASTROOESOPHAGEAL REFLUX DISEASE
     Dosage: 40 MG, DAILY

REACTIONS (5)
  - Feeling abnormal [Unknown]
  - Fall [Unknown]
  - Impulsive behaviour [Unknown]
  - Dizziness [Unknown]
  - Feeling drunk [Unknown]
